FAERS Safety Report 6842035-5 (Version None)
Quarter: 2010Q3

REPORT INFORMATION
  Report Type: 
  Country: None (occurrence: None)
  Receive Date: 20100714
  Receipt Date: 20070717
  Transmission Date: 20110219
  Serious: No
  Sender: FDA-Public Use
  Company Number: US-PFIZER INC-2007060934

PATIENT
  Sex: Female
  Weight: 75 kg

DRUGS (8)
  1. CHANTIX [Suspect]
     Indication: SMOKING CESSATION THERAPY
     Dates: start: 20070501
  2. VYTORIN [Concomitant]
  3. CALCIUM [Concomitant]
  4. FLAXSEED OIL [Concomitant]
  5. GINKGO BILOBA [Concomitant]
  6. TEA, GREEN [Concomitant]
  7. HERBAL PREPARATION [Concomitant]
  8. VITAMIN B COMPLEX CAP [Concomitant]

REACTIONS (8)
  - ABNORMAL DREAMS [None]
  - BLOOD GLUCOSE INCREASED [None]
  - BLOOD TRIGLYCERIDES INCREASED [None]
  - INCORRECT DRUG DOSAGE FORM ADMINISTERED [None]
  - INITIAL INSOMNIA [None]
  - NERVOUSNESS [None]
  - NOCTURIA [None]
  - TENSION [None]
